FAERS Safety Report 4422985-X (Version None)
Quarter: 2004Q3

REPORT INFORMATION
  Report Type: 
  Country: None (occurrence: None)
  Receive Date: 20040811
  Receipt Date: 20040810
  Transmission Date: 20050211
  Serious: Yes (Disabling)
  Sender: FDA-Public Use
  Company Number: US-BRISTOL-MYERS SQUIBB COMPANY-12666277

PATIENT
  Age: 59 Year
  Sex: Female

DRUGS (1)
  1. PRAVACHOL [Suspect]
     Indication: BLOOD CHOLESTEROL
     Route: 048
     Dates: end: 20040101

REACTIONS (2)
  - BLOOD CHOLESTEROL ABNORMAL [None]
  - OEDEMA PERIPHERAL [None]
